FAERS Safety Report 8021487-1 (Version None)
Quarter: 2012Q1

REPORT INFORMATION
  Report Type: 
  Country: None (occurrence: None)
  Receive Date: 20120104
  Receipt Date: 20111220
  Transmission Date: 20120608
  Serious: Yes (Hospitalization)
  Sender: FDA-Public Use
  Company Number: ES-CELGENEUS-144-50794-11122729

PATIENT
  Sex: Male
  Weight: 70 kg

DRUGS (3)
  1. VIDAZA [Suspect]
     Dosage: 120 MILLIGRAM
     Route: 058
     Dates: end: 20110110
  2. VIDAZA [Suspect]
     Dosage: 120 MILLIGRAM
     Route: 058
     Dates: start: 20090831
  3. VIDAZA [Suspect]
     Dosage: 120 MILLIGRAM
     Route: 058
     Dates: start: 20100222, end: 20100228

REACTIONS (1)
  - CHOLANGITIS [None]
